FAERS Safety Report 6715113-9 (Version None)
Quarter: 2010Q2

REPORT INFORMATION
  Report Type: 
  Country: None (occurrence: None)
  Receive Date: 20100507
  Receipt Date: 20100427
  Transmission Date: 20101027
  Serious: Yes (Hospitalization)
  Sender: FDA-Public Use
  Company Number: ES-PFIZER INC-2010053427

PATIENT
  Age: 78 Year
  Sex: Male
  Weight: 84 kg

DRUGS (12)
  1. BLINDED *NO SUBJECT DRUG [Suspect]
     Indication: PROSTATE CANCER
     Dosage: 25 MG, 1X/DAY
     Route: 048
     Dates: start: 20091005, end: 20100223
  2. BLINDED *PLACEBO [Suspect]
     Indication: PROSTATE CANCER
     Dosage: 25 MG, 1X/DAY
     Route: 048
     Dates: start: 20091005, end: 20100223
  3. BLINDED SUNITINIB MALATE [Suspect]
     Indication: PROSTATE CANCER
     Dosage: 25 MG, 1X/DAY
     Route: 048
     Dates: start: 20091005, end: 20100223
  4. *PREDNISONE [Suspect]
     Indication: PROSTATE CANCER
     Dosage: UNK
     Route: 048
     Dates: start: 20091005, end: 20100223
  5. AMILORIDE HCL AND HYDROCHLOROTHIAZIDE [Concomitant]
     Indication: HYPERTENSION
     Dosage: 5 MG/ 50 MG 1X/DAY
     Route: 048
     Dates: start: 20081112
  6. METAMIZOLE [Concomitant]
     Indication: MUSCULOSKELETAL CHEST PAIN
     Dosage: 375 MG, AS NEEDED
     Route: 048
     Dates: start: 20091104
  7. ENALAPRIL [Concomitant]
     Indication: HYPERTENSION
     Dosage: 5 MG, 1X/DAY
     Route: 048
     Dates: start: 20091104
  8. METOCLOPRAMIDE [Concomitant]
     Indication: NAUSEA
     Dosage: UNK
     Route: 048
  9. METOCLOPRAMIDE [Concomitant]
     Indication: VOMITING
  10. OMEPRAZOLE [Concomitant]
     Indication: PROPHYLAXIS
     Dosage: 10 MG, 1X/DAY
     Route: 048
     Dates: start: 20100113
  11. ZOLEDRONIC ACID [Concomitant]
     Indication: BONE PAIN
     Dosage: 4 MG, MONTHLY
     Route: 042
     Dates: start: 20100210
  12. CYCLOPHOSPHAMIDE [Concomitant]
     Indication: PROSTATE CANCER
     Dosage: 50 MG, 1X/DAY
     Route: 048
     Dates: start: 20100224

REACTIONS (1)
  - ACUTE CORONARY SYNDROME [None]
